FAERS Safety Report 4370630-4 (Version None)
Quarter: 2004Q2

REPORT INFORMATION
  Report Type: 
  Country: None (occurrence: None)
  Receive Date: 20040525
  Receipt Date: 20040511
  Transmission Date: 20050107
  Serious: Yes (Disabling)
  Sender: FDA-Public Use
  Company Number: 04H-163-0260682-00

PATIENT
  Age: 60 Year
  Sex: Female

DRUGS (10)
  1. LIDOCAINE HCL INJ [Suspect]
     Indication: VENTRICULAR FIBRILLATION
     Dosage: SEE IMAGE INTRAVENOUS
     Route: 042
  2. LIDOCAINE HCL INJ [Suspect]
     Indication: VENTRICULAR TACHYCARDIA
     Dosage: SEE IMAGE INTRAVENOUS
     Route: 042
  3. HEPARIN SODIUM [Suspect]
     Indication: ANTICOAGULANT THERAPY
  4. AMIODARONE HCL [Concomitant]
  5. BRETYLIUM [Concomitant]
  6. FENTANYL [Concomitant]
  7. FAMOTIDINE [Concomitant]
  8. LEVOTHYROXINE SODIUM [Concomitant]
  9. DOPAMINE HCL [Concomitant]
  10. PHENYLPHRINE [Concomitant]

REACTIONS (17)
  - AORTIC EMBOLUS [None]
  - AREFLEXIA [None]
  - BRAIN STEM SYNDROME [None]
  - CEREBROVASCULAR ACCIDENT [None]
  - COGNITIVE DISORDER [None]
  - COMA [None]
  - DEPRESSED LEVEL OF CONSCIOUSNESS [None]
  - DIALYSIS [None]
  - DRUG INTERACTION [None]
  - DRUG LEVEL INCREASED [None]
  - HEPARIN-INDUCED THROMBOCYTOPENIA [None]
  - LEG AMPUTATION [None]
  - PAIN [None]
  - RENAL FAILURE ACUTE [None]
  - SENSORY DISTURBANCE [None]
  - THROMBOSIS [None]
  - VENTRICULAR TACHYCARDIA [None]
